FAERS Safety Report 4755422-6 (Version None)
Quarter: 2005Q3

REPORT INFORMATION
  Report Type: 
  Country: None (occurrence: None)
  Receive Date: 20050826
  Receipt Date: 20050826
  Transmission Date: 20060218
  Serious: No
  Sender: FDA-Public Use
  Company Number: None

PATIENT
  Age: 31 Year
  Sex: Male
  Weight: 192.6 kg

DRUGS (1)
  1. LAMICTAL [Suspect]
     Indication: BIPOLAR DISORDER
     Dosage: ONE TAB DAILY PO
     Route: 048
     Dates: start: 20050725, end: 20050808

REACTIONS (1)
  - STEVENS-JOHNSON SYNDROME [None]
